FAERS Safety Report 19018145 (Version 1)
Quarter: 2021Q1

REPORT INFORMATION
  Report Type: Spontaneous
  Country: US (occurrence: US)
  Receive Date: 20210316
  Receipt Date: 20210316
  Transmission Date: 20210420
  Serious: No
  Sender: FDA-Public Use
  Company Number: None

PATIENT
  Age: 16 Year
  Sex: Male
  Weight: 65.7 kg

DRUGS (4)
  1. PRIFTIN [Suspect]
     Active Substance: RIFAPENTINE
     Indication: LATENT TUBERCULOSIS
     Dosage: ?          OTHER FREQUENCY:WEEKLY;?
     Route: 002
     Dates: start: 20191021, end: 20191120
  2. ISONIAZID. [Suspect]
     Active Substance: ISONIAZID
     Indication: LATENT TUBERCULOSIS
     Dosage: ?          OTHER FREQUENCY:WEEKLY;?
     Route: 002
     Dates: start: 20191021, end: 20191120
  3. DOXYCYCLINE. [Concomitant]
     Active Substance: DOXYCYCLINE
     Dates: start: 20190917, end: 20191116
  4. PYRIDOXINE 50 MG [Concomitant]
     Dates: start: 20191021, end: 20191120

REACTIONS (5)
  - Nausea [None]
  - Transaminases increased [None]
  - Pruritus [None]
  - Headache [None]
  - Therapy cessation [None]

NARRATIVE: CASE EVENT DATE: 20191121
